FAERS Safety Report 16309276 (Version 1)
Quarter: 2019Q2

REPORT INFORMATION
  Report Type: Report from Study
  Country: US (occurrence: US)
  Receive Date: 20190514
  Receipt Date: 20190514
  Transmission Date: 20190711
  Serious: Yes (Life-Threatening, Hospitalization)
  Sender: FDA-Public Use
  Company Number: US-AMGEN-USACT2019074785

PATIENT
  Age: 57 Year
  Sex: Male
  Weight: 87.4 kg

DRUGS (2)
  1. BLINATUMOMAB [Suspect]
     Active Substance: BLINATUMOMAB
     Indication: PRECURSOR B-LYMPHOBLASTIC LYMPHOMA REFRACTORY
     Dosage: 9 MICROGRAM, QD
     Route: 042
     Dates: start: 20180725, end: 20181210
  2. NIVOLUMAB [Suspect]
     Active Substance: NIVOLUMAB
     Indication: PRECURSOR B-LYMPHOBLASTIC LYMPHOMA REFRACTORY
     Dosage: 240 MILLIGRAM, ON DAY 11 AND THEN EVERY TWO WEEKS
     Route: 042
     Dates: end: 20181205

REACTIONS (1)
  - Pneumonitis [Unknown]

NARRATIVE: CASE EVENT DATE: 20190118
